FAERS Safety Report 8047630-6 (Version None)
Quarter: 2012Q1

REPORT INFORMATION
  Report Type: 
  Country: None (occurrence: None)
  Receive Date: 20120116
  Receipt Date: 20120109
  Transmission Date: 20120608
  Serious: Yes (Hospitalization)
  Sender: FDA-Public Use
  Company Number: FR-GLAXOSMITHKLINE-B0774139A

PATIENT
  Sex: Male

DRUGS (2)
  1. PAROXETINE HCL [Suspect]
     Indication: ABNORMAL BEHAVIOUR
     Dosage: 20MG PER DAY
     Route: 048
     Dates: start: 20111128, end: 20111222
  2. PRAZEPAM [Concomitant]
     Indication: ABNORMAL BEHAVIOUR
     Dosage: 10MG PER DAY
     Route: 048
     Dates: start: 20111128

REACTIONS (3)
  - LOSS OF CONSCIOUSNESS [None]
  - FALL [None]
  - THROMBOCYTOPENIA [None]
